FAERS Safety Report 4804509-8 (Version None)
Quarter: 2005Q4

REPORT INFORMATION
  Report Type: 
  Country: None (occurrence: None)
  Receive Date: 20051017
  Receipt Date: 20050929
  Transmission Date: 20060501
  Serious: Yes (Hospitalization, Other)
  Sender: FDA-Public Use
  Company Number: 12448

PATIENT
  Age: 47 Year
  Sex: Female

DRUGS (5)
  1. ETANERCEPT [Suspect]
     Indication: RHEUMATOID ARTHRITIS
     Dosage: 25 MG 2/WK SC
     Route: 058
     Dates: start: 20031101, end: 20050816
  2. METHOTREXATE [Concomitant]
  3. PREDNISOLONE [Concomitant]
  4. ALENDRONATE [Concomitant]
  5. FOLIC ACID [Concomitant]

REACTIONS (2)
  - OVARIAN CANCER [None]
  - OVARIAN CYST RUPTURED [None]
